FAERS Safety Report 10415622 (Version 1)
Quarter: 2014Q2

REPORT INFORMATION
  Report Type: Spontaneous
  Country: US (occurrence: None)
  Receive Date: 20140604
  Receipt Date: 20140604
  Transmission Date: 20141212
  Serious: Yes (Other)
  Sender: FDA-Public Use
  Company Number: 163-POMAL-14043424

PATIENT
  Age: 61 Year
  Sex: Female
  Weight: 75.75 kg

DRUGS (13)
  1. POMALYST (POMALIDOMIDE) (4 MILLIGRAM, CAPSULES) [Suspect]
     Indication: PLASMA CELL MYELOMA
     Dosage: 21 IN 21 D
     Route: 048
     Dates: start: 20131223
  2. VIT D3 (COLECALCIFEROL) [Concomitant]
  3. VIT B12 (CYANOCOBALAMIN) [Concomitant]
  4. SIMVASTATIN [Concomitant]
  5. CO Q-10 (UBIDECARENONE) [Concomitant]
  6. VIT B1 (THIAMINE HYDROCHLORIDE) [Concomitant]
  7. MULTIVITAMINS [Concomitant]
  8. LORATADINE [Concomitant]
  9. BUPROPION [Concomitant]
  10. GABAPENTIN [Concomitant]
  11. ACYCLOVIR (ACICLOVIR) [Concomitant]
  12. ENOXAPARIN SODIUM (HEPARIN-FRACTION, SODIUM SALT) [Concomitant]
  13. DEXAMETHASONE [Concomitant]

REACTIONS (3)
  - Memory impairment [None]
  - Dizziness [None]
  - Confusional state [None]
